FAERS Safety Report 20933251 (Version 3)
Quarter: 2022Q2

REPORT INFORMATION
  Report Type: Spontaneous
  Country: FR (occurrence: FR)
  Receive Date: 20220608
  Receipt Date: 20220630
  Transmission Date: 20220721
  Serious: Yes (Hospitalization, Other)
  Sender: FDA-Public Use
  Company Number: FR-GILEAD-2022-0584476

PATIENT
  Age: 57 Year
  Sex: Male
  Weight: 48 kg

DRUGS (3)
  1. BIKTARVY [Suspect]
     Active Substance: BICTEGRAVIR SODIUM\EMTRICITABINE\TENOFOVIR ALAFENAMIDE FUMARATE
     Indication: HIV infection
     Dosage: 1 DOSAGE FORM, QD
     Route: 048
     Dates: end: 202205
  2. BIKTARVY [Suspect]
     Active Substance: BICTEGRAVIR SODIUM\EMTRICITABINE\TENOFOVIR ALAFENAMIDE FUMARATE
     Indication: Acquired immunodeficiency syndrome
     Dosage: DILUTION OF THE TABLET IN 240ML OF  WATER AND RINSE OF THE TUBE WITH 120ML OF WATER.
     Route: 050
  3. CISPLATIN [Suspect]
     Active Substance: CISPLATIN
     Indication: Tonsil cancer
     Dosage: UNK
     Route: 065

REACTIONS (11)
  - Gastrointestinal tube insertion [Not Recovered/Not Resolved]
  - Gastrostomy [Not Recovered/Not Resolved]
  - Tonsil cancer [Unknown]
  - Resuscitation [Unknown]
  - Diabetes mellitus [Recovered/Resolved]
  - Confusional state [Recovered/Resolved]
  - CD4 lymphocytes decreased [Not Recovered/Not Resolved]
  - Off label use [Not Recovered/Not Resolved]
  - Papilloma viral infection [Unknown]
  - Hypernatraemia [Unknown]
  - Pharyngeal inflammation [Not Recovered/Not Resolved]

NARRATIVE: CASE EVENT DATE: 20220201
